FAERS Safety Report 16934994 (Version 5)
Quarter: 2023Q1

REPORT INFORMATION
  Report Type: Spontaneous
  Country: US (occurrence: US)
  Receive Date: 20191018
  Receipt Date: 20230106
  Transmission Date: 20230418
  Serious: Yes (Other)
  Sender: FDA-Public Use
  Company Number: US-PFIZER INC-2019448822

PATIENT
  Age: 68 Year
  Sex: Male

DRUGS (1)
  1. XELJANZ [Suspect]
     Active Substance: TOFACITINIB CITRATE
     Dosage: 5 MG

REACTIONS (6)
  - Pneumonia [Unknown]
  - Rheumatoid arthritis [Unknown]
  - Lung disorder [Unknown]
  - Illness [Unknown]
  - Total lung capacity decreased [Unknown]
  - COVID-19 [Unknown]
